FAERS Safety Report 6527722-0 (Version None)
Quarter: 2010Q1

REPORT INFORMATION
  Report Type: 
  Country: None (occurrence: None)
  Receive Date: 20100106
  Receipt Date: 20091228
  Transmission Date: 20100710
  Serious: Yes (Other)
  Sender: FDA-Public Use
  Company Number: US-BIOGENIDEC-2009BI018343

PATIENT
  Age: 20 Year
  Sex: Female

DRUGS (2)
  1. AVONEX [Suspect]
     Indication: MULTIPLE SCLEROSIS
     Route: 030
     Dates: start: 20050103, end: 20050704
  2. AVONEX [Suspect]
     Route: 030
     Dates: start: 20061201

REACTIONS (1)
  - STILLBIRTH [None]
